FAERS Safety Report 25266949 (Version 2)
Quarter: 2025Q2

REPORT INFORMATION
  Report Type: Report from Study
  Country: CA (occurrence: CA)
  Receive Date: 20250505
  Receipt Date: 20250528
  Transmission Date: 20250716
  Serious: Yes (Death, Other)
  Sender: Alvotech
  Company Number: CA-JAMP PHARMA CORPORATION-2023-JAM-CA-01292

PATIENT
  Age: 71 Year
  Sex: Female

DRUGS (4)
  1. SIMLANDI [Suspect]
     Active Substance: ADALIMUMAB-RYVK
     Indication: Ankylosing spondylitis
     Dosage: 40 MG, EVERY 10 DAYS
     Route: 058
  2. RAMIPRIL [Suspect]
     Active Substance: RAMIPRIL
     Indication: Hypertension
     Route: 048
     Dates: start: 20250125
  3. SIMLANDI [Suspect]
     Active Substance: ADALIMUMAB-RYVK
     Indication: Ankylosing spondylitis
     Dosage: 40 MILLIGRAM, EVERY 20 DAYS
     Route: 058
     Dates: start: 20230619, end: 20230719
  4. SIMLANDI [Suspect]
     Active Substance: ADALIMUMAB-RYVK
     Indication: Ankylosing spondylitis
     Dosage: 40 MILLIGRAM, EVERY 2 WEEKS
     Route: 058

REACTIONS (13)
  - Respiratory failure [Fatal]
  - Gastrooesophageal reflux disease [Unknown]
  - Chest pain [Unknown]
  - Flatulence [Unknown]
  - Muscle spasms [Unknown]
  - Blood pressure increased [Unknown]
  - Nasopharyngitis [Recovered/Resolved]
  - Cough [Recovered/Resolved]
  - Malaise [Unknown]
  - Off label use [Unknown]
  - Inappropriate schedule of product administration [Unknown]
  - Insurance issue [Unknown]
  - Product dose omission issue [Unknown]

NARRATIVE: CASE EVENT DATE: 20250421
